FAERS Safety Report 7717771-9 (Version None)
Quarter: 2011Q3

REPORT INFORMATION
  Report Type: 
  Country: None (occurrence: None)
  Receive Date: 20110817
  Receipt Date: 20101103
  Transmission Date: 20111222
  Serious: Yes (Other)
  Sender: FDA-Public Use
  Company Number: 20109095

PATIENT
  Age: 64 Year
  Sex: Male

DRUGS (4)
  1. LIORESAL [Suspect]
     Indication: MUSCLE SPASTICITY
     Dosage: SEE B5 MCG, DAILY, INTRATHECAL
     Route: 037
  2. DAILUDID [Concomitant]
  3. CLONIDINE [Concomitant]
  4. BUPIVACAINE HCL [Concomitant]

REACTIONS (2)
  - HYPOAESTHESIA [None]
  - PAIN [None]
